FAERS Safety Report 6688763-6 (Version None)
Quarter: 2010Q2

REPORT INFORMATION
  Report Type: 
  Country: None (occurrence: None)
  Receive Date: 20100420
  Receipt Date: 20100410
  Transmission Date: 20101027
  Serious: Yes (Other)
  Sender: FDA-Public Use
  Company Number: B0648386A

PATIENT
  Age: 41 Year
  Sex: Female

DRUGS (2)
  1. LAMICTAL [Suspect]
     Indication: CONDUCT DISORDER
     Dosage: 100MG PER DAY
     Route: 065
  2. EFFEXOR [Suspect]
     Indication: CONDUCT DISORDER
     Dosage: 300MG PER DAY
     Route: 065

REACTIONS (3)
  - DRUG EXPOSURE DURING PREGNANCY [None]
  - PRE-ECLAMPSIA [None]
  - PREMATURE BABY [None]
